FAERS Safety Report 17860947 (Version 5)
Quarter: 2020Q4

REPORT INFORMATION
  Report Type: Spontaneous
  Country: US (occurrence: US)
  Receive Date: 20200604
  Receipt Date: 20201207
  Transmission Date: 20210113
  Serious: No
  Sender: FDA-Public Use
  Company Number: US-INCYTE CORPORATION-2020IN005077

PATIENT

DRUGS (45)
  1. QUETIAPINE. [Concomitant]
     Active Substance: QUETIAPINE
     Dosage: 50 MILLIGRAM, QHS
     Route: 048
  2. JAKAFI [Suspect]
     Active Substance: RUXOLITINIB
     Dosage: 10 MILLIGRAM, QD
     Route: 048
     Dates: start: 20190409
  3. JAKAFI [Suspect]
     Active Substance: RUXOLITINIB
     Dosage: 10 MILLIGRAM, BID
     Route: 048
     Dates: start: 20190915
  4. CLINDAMYCIN. [Concomitant]
     Active Substance: CLINDAMYCIN
     Dosage: 300 MILLIGRAM, QID (UNTIL ALL TAKEN)
     Route: 048
  5. HYDROCODONE/ACETAMINOPHEN [Concomitant]
     Active Substance: ACETAMINOPHEN\HYDROCODONE
     Indication: PAIN
     Dosage: 7.5-325 (1 TAB) Q6H PRN
     Route: 048
  6. HYDROXYCHLOROQUINE [Concomitant]
     Active Substance: HYDROXYCHLOROQUINE
     Indication: PRODUCT USED FOR UNKNOWN INDICATION
     Dosage: 200 MILLIGRAM, BID (WITH FOOD OR MILK)
     Route: 048
  7. HYDROXYZINE PAMOATE. [Concomitant]
     Active Substance: HYDROXYZINE PAMOATE
     Indication: PRODUCT USED FOR UNKNOWN INDICATION
     Dosage: 25 MILLIGRAM, Q6H
     Route: 048
  8. TOPIRAMATE. [Concomitant]
     Active Substance: TOPIRAMATE
     Indication: PRODUCT USED FOR UNKNOWN INDICATION
     Dosage: 25 MILLIGRAM, QPM, MAY INCREASE TO 2 TAB QPM AFTER 1 WEEK
     Route: 048
  9. CLINDAMYCIN. [Concomitant]
     Active Substance: CLINDAMYCIN
     Dosage: 300 MILLIGRAM Q6H PRN
     Route: 048
  10. CLINDAMYCIN. [Concomitant]
     Active Substance: CLINDAMYCIN
     Dosage: 600 MG (2X300 MG) THEN 300 MG Q6H UNTIL GONE
     Route: 048
  11. CLINDAMYCIN. [Concomitant]
     Active Substance: CLINDAMYCIN
     Dosage: 150 MILLIGRAM, ONE HOUR PRIOR TO PROCEDURE
     Route: 048
  12. RESTASIS [Concomitant]
     Active Substance: CYCLOSPORINE
     Indication: PRODUCT USED FOR UNKNOWN INDICATION
     Dosage: 1 DROP INTO BOTH EYES, BID
     Route: 047
  13. TIZANIDINE. [Concomitant]
     Active Substance: TIZANIDINE
     Indication: PRODUCT USED FOR UNKNOWN INDICATION
     Dosage: 2 MILLIGRAM, QHS, MAY INCREASE TID AS TOLERATED
     Route: 048
  14. JAKAFI [Suspect]
     Active Substance: RUXOLITINIB
     Indication: POLYCYTHAEMIA VERA
     Dosage: 10 MILLIGRAM, QD
     Route: 048
     Dates: start: 20190314
  15. BACLOFEN. [Concomitant]
     Active Substance: BACLOFEN
     Indication: PRODUCT USED FOR UNKNOWN INDICATION
     Dosage: 10 MILLIGRAM, TID
     Route: 048
  16. CLINDAMYCIN. [Concomitant]
     Active Substance: CLINDAMYCIN
     Indication: PRODUCT USED FOR UNKNOWN INDICATION
     Dosage: 600 MG (4X150 MG) 1 HR PRIOR TO PROCEDURE
     Route: 048
  17. DRONABINOL. [Concomitant]
     Active Substance: DRONABINOL
     Indication: PRODUCT USED FOR UNKNOWN INDICATION
     Dosage: 2.5 MILLIGRAM QHS
     Route: 048
     Dates: start: 20200213
  18. FLUOXETINE [Concomitant]
     Active Substance: FLUOXETINE HYDROCHLORIDE
     Indication: PRODUCT USED FOR UNKNOWN INDICATION
     Dosage: 40 MILLIGRAM, QAM
     Route: 048
     Dates: start: 20190513
  19. HYDROXYUREA. [Concomitant]
     Active Substance: HYDROXYUREA
     Indication: PRODUCT USED FOR UNKNOWN INDICATION
     Dosage: 1000 MG (2X500 MG) QAM AND 500 MG QHS
     Route: 048
  20. NIFEDIPINE. [Concomitant]
     Active Substance: NIFEDIPINE
     Indication: PRODUCT USED FOR UNKNOWN INDICATION
     Dosage: 30 MILLIGRAM, QD
     Route: 048
  21. QUETIAPINE. [Concomitant]
     Active Substance: QUETIAPINE
     Indication: PRODUCT USED FOR UNKNOWN INDICATION
     Dosage: 50 MILLIGRAM, QHS
     Route: 048
  22. VITAMIN D [VITAMIN D NOS] [Concomitant]
     Active Substance: VITAMIN D NOS
     Indication: PRODUCT USED FOR UNKNOWN INDICATION
     Dosage: 1000 INTERNATIONAL UNIT
     Route: 065
  23. JAKAFI [Suspect]
     Active Substance: RUXOLITINIB
     Dosage: 10 MILLIGRAM, BID
     Route: 048
     Dates: start: 20190315
  24. CLINDAMYCIN. [Concomitant]
     Active Substance: CLINDAMYCIN
     Dosage: 600 MG (2 CAPSX300MG) 1 HR BEFORE DENTAL APPOINTMENT
     Route: 048
  25. FLUOXETINE [Concomitant]
     Active Substance: FLUOXETINE HYDROCHLORIDE
     Dosage: 20 MILLIGRAM, 2 CAPS QAM, 1 CAP QPM
     Route: 048
  26. HYDROXYCHLOROQUINE [Concomitant]
     Active Substance: HYDROXYCHLOROQUINE
     Dosage: 200 MILLIGRAM, BID
     Route: 048
  27. MYCOPHENOLATE [Concomitant]
     Active Substance: MYCOPHENOLIC ACID
     Dosage: 250 MILLIGRAM (4 CAPS BID)
     Route: 048
  28. PAIN RELIEVER [Concomitant]
     Indication: PRODUCT USED FOR UNKNOWN INDICATION
     Dosage: 325 MILLIGRAM
     Route: 065
  29. JAKAFI [Suspect]
     Active Substance: RUXOLITINIB
     Dosage: 10 MILLIGRAM, QD
     Route: 048
     Dates: start: 20190314
  30. CLINDAMYCIN. [Concomitant]
     Active Substance: CLINDAMYCIN
     Dosage: 300 MILLIGRAM FOUR TIMES DAILY UNTIL COMPLETE
     Route: 048
  31. HYDROXYCHLOROQUINE [Concomitant]
     Active Substance: HYDROXYCHLOROQUINE
     Dosage: 200 MILLIGRAM, QD
     Route: 048
  32. HYDROXYUREA. [Concomitant]
     Active Substance: HYDROXYUREA
     Dosage: 500 MILLIGRAM, BID (QAM AND QPM)
     Route: 048
  33. METFORMIN ER [Concomitant]
     Active Substance: METFORMIN HYDROCHLORIDE
     Indication: PRODUCT USED FOR UNKNOWN INDICATION
     Dosage: 1500 MILLIGRAM (2X750 MG), QD
     Route: 048
  34. RIZATRIPTAN. [Concomitant]
     Active Substance: RIZATRIPTAN
     Indication: MIGRAINE
     Dosage: 10 MILLIGRAM, 1/2 TO 1 TABLET; MAX 3 TABS PER 24HRS, MAX 5 TABS PER WEEK
     Route: 048
  35. TOPIRAMATE. [Concomitant]
     Active Substance: TOPIRAMATE
     Dosage: 50 MILLIGRAM, QHS
     Route: 048
  36. CLINDAMYCIN. [Concomitant]
     Active Substance: CLINDAMYCIN
     Dosage: 300 MILLIGRAM, TID (UNTIL GONE)
     Route: 048
  37. CLINDAMYCIN. [Concomitant]
     Active Substance: CLINDAMYCIN
     Dosage: 300 MILLIGRAM, ONE CAPSULE BY MOUTH FOUR TIMES DAILY UNTIL ALL TAKEN
     Route: 048
  38. FLUOXETINE [Concomitant]
     Active Substance: FLUOXETINE HYDROCHLORIDE
     Dosage: 60 MILLIGRAM (3X20MG), QD
     Route: 048
  39. HYDROXYZINE HYDROCHLORIDE. [Concomitant]
     Active Substance: HYDROXYZINE HYDROCHLORIDE
     Indication: PRODUCT USED FOR UNKNOWN INDICATION
     Dosage: 25 MILLIGRAM, Q6H
     Route: 048
  40. HYDROXYZINE PAMOATE. [Concomitant]
     Active Substance: HYDROXYZINE PAMOATE
     Dosage: 25 MILLIGRAM, Q6H
     Route: 048
  41. METFORMIN ER [Concomitant]
     Active Substance: METFORMIN HYDROCHLORIDE
     Dosage: 2 750 MILLIGRAM (24HR TAB) QD
     Route: 048
  42. BUSPIRONE [Concomitant]
     Active Substance: BUSPIRONE HYDROCHLORIDE
     Indication: ANXIETY
     Dosage: 10 MILLIGRAM, BID
     Route: 048
  43. BACLOFEN. [Concomitant]
     Active Substance: BACLOFEN
     Dosage: 10 MILLIGRAM, TID
     Route: 048
  44. MYCOPHENOLATE [Concomitant]
     Active Substance: MYCOPHENOLIC ACID
     Indication: PRODUCT USED FOR UNKNOWN INDICATION
     Dosage: 1000 MILLIGRAM (4X250), BID
     Route: 048
  45. TOPIRAMATE. [Concomitant]
     Active Substance: TOPIRAMATE
     Dosage: 50 MILLIGRAM, BID
     Route: 048

REACTIONS (10)
  - Amnesia [Not Recovered/Not Resolved]
  - Headache [Not Recovered/Not Resolved]
  - Confusional state [Not Recovered/Not Resolved]
  - Ageusia [Not Recovered/Not Resolved]
  - Weight decreased [Not Recovered/Not Resolved]
  - Hypogeusia [Not Recovered/Not Resolved]
  - Hyposmia [Not Recovered/Not Resolved]
  - Product dose omission issue [Unknown]
  - Anosmia [Not Recovered/Not Resolved]
  - Slow speech [Not Recovered/Not Resolved]

NARRATIVE: CASE EVENT DATE: 2019
